FAERS Safety Report 6210591-6 (Version None)
Quarter: 2009Q2

REPORT INFORMATION
  Report Type: 
  Country: None (occurrence: None)
  Receive Date: 20090601
  Receipt Date: 20090521
  Transmission Date: 20091009
  Serious: Yes (Life-Threatening, Hospitalization)
  Sender: FDA-Public Use
  Company Number: B0572408A

PATIENT
  Age: 84 Year
  Sex: Male

DRUGS (11)
  1. ARTIST [Suspect]
     Indication: HYPERTENSION
     Route: 048
  2. HERBESSER [Suspect]
     Indication: DRUG USE FOR UNKNOWN INDICATION
     Dosage: 100MG PER DAY
     Route: 065
     Dates: start: 20090406, end: 20090408
  3. OLMETEC [Suspect]
     Indication: HYPERTENSION
     Dosage: 20MG TWICE PER DAY
  4. CALBLOCK [Suspect]
     Indication: HYPERTENSION
     Dosage: 16MG PER DAY
     Route: 048
  5. ATELEC [Suspect]
     Indication: DRUG USE FOR UNKNOWN INDICATION
     Dosage: 10MG PER DAY
     Route: 048
  6. NATRILIX [Suspect]
     Indication: DRUG USE FOR UNKNOWN INDICATION
     Dosage: 2MG TWICE PER DAY
     Route: 048
  7. TAKEPRON [Concomitant]
  8. AMARYL [Concomitant]
  9. BASEN [Concomitant]
  10. ACTOS [Concomitant]
  11. RAMOSETRON [Concomitant]

REACTIONS (10)
  - ARRHYTHMIA [None]
  - BLOOD PRESSURE DECREASED [None]
  - BRADYCARDIA [None]
  - DIZZINESS [None]
  - HAEMATOCRIT DECREASED [None]
  - HAEMODYNAMIC INSTABILITY [None]
  - HAEMOGLOBIN DECREASED [None]
  - HYPERKALAEMIA [None]
  - PLATELET COUNT DECREASED [None]
  - RENAL IMPAIRMENT [None]
